FAERS Safety Report 12130946 (Version 1)
Quarter: 2016Q1

REPORT INFORMATION
  Report Type: Spontaneous
  Country: US (occurrence: None)
  Receive Date: 20160229
  Receipt Date: 20160229
  Transmission Date: 20160526
  Serious: Yes (Hospitalization)
  Sender: FDA-Public Use
  Company Number: None

PATIENT
  Age: 82 Year
  Sex: Female
  Weight: 64 kg

DRUGS (14)
  1. DIVALPROEX [Concomitant]
     Active Substance: DIVALPROEX SODIUM
  2. LASIX [Concomitant]
     Active Substance: FUROSEMIDE
  3. TAMIFLU [Suspect]
     Active Substance: OSELTAMIVIR PHOSPHATE
     Indication: INFLUENZA
     Route: 048
  4. FLORINEF ACETATE [Concomitant]
     Active Substance: FLUDROCORTISONE ACETATE
  5. ATIVAN [Concomitant]
     Active Substance: LORAZEPAM
  6. REMERON [Concomitant]
     Active Substance: MIRTAZAPINE
  7. PROZAC [Concomitant]
     Active Substance: FLUOXETINE HYDROCHLORIDE
  8. COZAAR [Concomitant]
     Active Substance: LOSARTAN POTASSIUM
  9. LEVOTHYROXINE. [Concomitant]
     Active Substance: LEVOTHYROXINE
  10. OXYCODONE [Concomitant]
     Active Substance: OXYCODONE
  11. CEFUROXIME. [Concomitant]
     Active Substance: CEFUROXIME
  12. NEURONTIN [Concomitant]
     Active Substance: GABAPENTIN
  13. MELATONIN [Concomitant]
     Active Substance: MELATONIN
  14. SIMVASTATIN. [Concomitant]
     Active Substance: SIMVASTATIN

REACTIONS (5)
  - Acute kidney injury [None]
  - Hypovolaemia [None]
  - Confusional state [None]
  - Mental status changes [None]
  - Hallucination, visual [None]

NARRATIVE: CASE EVENT DATE: 20160225
